FAERS Safety Report 22128591 (Version 1)
Quarter: 2023Q1

REPORT INFORMATION
  Report Type: Spontaneous
  Country: IT (occurrence: IT)
  Receive Date: 20230323
  Receipt Date: 20230323
  Transmission Date: 20230418
  Serious: Yes (Other)
  Sender: FDA-Public Use
  Company Number: IT-CELLTRION INC.-2023IT005821

PATIENT

DRUGS (24)
  1. RITUXIMAB [Suspect]
     Active Substance: RITUXIMAB
     Indication: Primary mediastinal large B-cell lymphoma
     Dosage: 375 MG/M2 ON DAY 0: 2 COURSES OF COURSE AA, 3 COURSES OF COURSE BB AND 2 COURSES OF COURSE CC/6 DOSE
  2. RITUXIMAB [Suspect]
     Active Substance: RITUXIMAB
     Dosage: RECEIVED TWO CYCLES OF R-ICE (RITUXIMAB IFOSFAMIDE, CARBOPLATIN, ETOPOSIDE)./ 6 DOSES AT 375 MG/M2 2
  3. CYTARABINE [Suspect]
     Active Substance: CYTARABINE
     Indication: Primary mediastinal large B-cell lymphoma
     Dosage: 3 G/M2 IN TWO DOSES (DOSES ARE 12 HOURS APART) FOR 3 HOURS ON DAY 1 AND 2: 2 COURSES OF COURSE CC
  4. CYTARABINE [Suspect]
     Active Substance: CYTARABINE
     Dosage: METHOTREXATE, CYTARABINE AND PREDNISOLONE (12MG+30MG+10MG) ON DAY 1: IN PREPHASE THERAPY, 2 COURS...
  5. CYTARABINE [Suspect]
     Active Substance: CYTARABINE
     Dosage: 150 MG/M2 IN TWO DOSES (DOSES ARE 12 HOURS APART) FOR 1 HOUR ON DAY 4 AND 5: 2 COURSES OF COURSE AA
  6. IFOSFAMIDE [Suspect]
     Active Substance: IFOSFAMIDE
     Indication: Primary mediastinal large B-cell lymphoma
     Dosage: RECEIVED TWO CYCLES OF R-ICE (RITUXIMAB IFOSFAMIDE, CARBOPLATIN, ETOPOSIDE)./ 2 CYCLICAL
  7. IFOSFAMIDE [Suspect]
     Active Substance: IFOSFAMIDE
     Dosage: 800 MG/M2 FOR 1 HOUR ON DAY 1 TO 5: COURSE AA (2 COURSES) /2 CYCLICAL
  8. LEUCOVORIN [Suspect]
     Active Substance: LEUCOVORIN
     Indication: Primary mediastinal large B-cell lymphoma
     Dosage: 15 MG/M2 AT H 42, 7.5 MG/M2 AT H 48, AND 54 AFTER BEGINNING OF MTX
  9. METHOTREXATE [Suspect]
     Active Substance: METHOTREXATE
     Indication: Primary mediastinal large B-cell lymphoma
     Dosage: UNK
  10. METHOTREXATE [Suspect]
     Active Substance: METHOTREXATE
     Dosage: 3 G/M2, DOSE: 1 DOSE, EVERY 24 HOURS
  11. ETOPOSIDE [Suspect]
     Active Substance: ETOPOSIDE
     Indication: Primary mediastinal large B-cell lymphoma
     Dosage: RECEIVED TWO CYCLES OF R-ICE (RITUXIMAB IFOSFAMIDE, CARBOPLATIN, ETOPOSIDE)./2 CYCLICAL
  12. ETOPOSIDE [Suspect]
     Active Substance: ETOPOSIDE
     Dosage: 100 MG/M2 FOR 2 HOURS ON DAY 4 AND 5 (2 COURSES OF COURSE AA AND 2 COURSES OF COURSE CC)/ 2 CYCLICAL
  13. DEXAMETHASONE [Suspect]
     Active Substance: DEXAMETHASONE
     Indication: Primary mediastinal large B-cell lymphoma
     Dosage: ON DAY 1 AND 2 OF PREPHASE THERAPY
  14. DEXAMETHASONE [Suspect]
     Active Substance: DEXAMETHASONE
     Dosage: RECEIVED 20 MG/M2 IN 2 COURSES OF COURSE CC ON DAY 0-5
  15. DEXAMETHASONE [Suspect]
     Active Substance: DEXAMETHASONE
     Dosage: 10 MG/M2 ON DAY 1 AND 2 OF PREPHASE THERAPY (SUBDIVIDED IN 3 DOSES)
  16. DEXAMETHASONE [Suspect]
     Active Substance: DEXAMETHASONE
     Dosage: RECEIVED 10 MG/M2 IN 2 COURSES OF COURSE AA AND 3 COURSES OF COURSE BB ON 1 TO 5.
  17. CYCLOPHOSPHAMIDE [Suspect]
     Active Substance: CYCLOPHOSPHAMIDE
     Indication: Primary mediastinal large B-cell lymphoma
     Dosage: ON DAY 1 AND 2 OF PREPHASE
  18. PREDNISOLONE [Suspect]
     Active Substance: PREDNISOLONE
     Indication: Primary mediastinal large B-cell lymphoma
     Dosage: METHOTREXATE, CYTARABINE AND PREDNISOLONE(12MG+30MG+10MG) ON DAY 1: IN PREPHASE THERAPY, 2 COURS...
  19. DOXORUBICIN [Suspect]
     Active Substance: DOXORUBICIN
     Indication: Primary mediastinal large B-cell lymphoma
     Dosage: 30 MG/M2 DAILY FOR 4 HOURS ON DAY 4 AND 5 (3 COURSES OF COURSE BB)
  20. VINDESINE [Suspect]
     Active Substance: VINDESINE
     Indication: Primary mediastinal large B-cell lymphoma
     Dosage: 3 MG/M2 ON DAY 1 (2 COURSES OF COURSE CC)
  21. VINCRISTINE [Suspect]
     Active Substance: VINCRISTINE
     Indication: Primary mediastinal large B-cell lymphoma
     Dosage: 1.5 MG/M2 ON DAY 1 (2 COURSES OF COURSE AA AND 3 COURSES OF COURSE BB)
  22. CARBOPLATIN [Suspect]
     Active Substance: CARBOPLATIN
     Indication: Primary mediastinal large B-cell lymphoma
     Dosage: RECEIVED TWO CYCLES OF R-ICE (RITUXIMAB IFOSFAMIDE, CARBOPLATIN, ETOPOSIDE)./ 2 CYCLICAL
  23. MABTHERA [Suspect]
     Active Substance: RITUXIMAB
     Indication: Primary mediastinal large B-cell lymphoma
     Dosage: 375 MG/M2 ON DAY 0: 2 COURSES OF COURSE AA, 3 COURSES OF COURSE BB AND 2 COURSES OF COURSE CC/ 6 DOS
  24. IFOSFAMIDE [Suspect]
     Active Substance: IFOSFAMIDE
     Indication: Primary mediastinal large B-cell lymphoma
     Dosage: RECEIVED TWO CYCLES OF R-ICE (RITUXIMAB IFOSFAMIDE, CARBOPLATIN, ETOPOSIDE)./ 2 CYCLICAL

REACTIONS (2)
  - Dyspnoea [Unknown]
  - Off label use [Unknown]
